FAERS Safety Report 4614646-9 (Version None)
Quarter: 2005Q2

REPORT INFORMATION
  Report Type: 
  Country: None (occurrence: None)
  Receive Date: 20050311
  Receipt Date: 20050103
  Transmission Date: 20051028
  Serious: No
  Sender: FDA-Public Use
  Company Number: 2005-BP-00129BP

PATIENT
  Sex: Female

DRUGS (4)
  1. SPIRIVA [Suspect]
     Indication: CHRONIC OBSTRUCTIVE PULMONARY DISEASE
     Dosage: 18 MCG (18 MCG, 18 IN 1 D), IH
     Route: 055
     Dates: start: 20041001, end: 20050102
  2. SPIRIVA [Suspect]
  3. MOBIC [Suspect]
     Indication: OSTEOARTHRITIS
     Dosage: 7.5  (NR, 3 DAYS ON/ 3 DAYS OFF), PO
     Route: 048
     Dates: start: 20041001, end: 20050102
  4. THEOPHYLLINE [Concomitant]

REACTIONS (4)
  - ARTHRALGIA [None]
  - NAUSEA [None]
  - PAIN IN EXTREMITY [None]
  - STOMACH DISCOMFORT [None]
